FAERS Safety Report 14074755 (Version 1)
Quarter: 2017Q4

REPORT INFORMATION
  Report Type: Spontaneous
  Country: CN (occurrence: CN)
  Receive Date: 20171010
  Receipt Date: 20171010
  Transmission Date: 20180321
  Serious: Yes (Hospitalization, Other)
  Sender: FDA-Public Use
  Company Number: CN-BRACCO-2017CN04408

PATIENT
  Age: 52 Year
  Sex: Female

DRUGS (11)
  1. IOPAMIRO [Suspect]
     Active Substance: IOPAMIDOL
     Indication: ANGIOGRAM
     Dosage: 65 ML, SINGLE
     Route: 013
     Dates: start: 20160503, end: 20160503
  2. LEVAMLODIPINE BESILATE [Concomitant]
     Active Substance: LEVAMLODIPINE BESYLATE
     Dosage: 2.5 MG/DL, UNK
  3. VALSARTAN. [Concomitant]
     Active Substance: VALSARTAN
  4. XIAO KE [Concomitant]
  5. METFORMIN [Concomitant]
     Active Substance: METFORMIN HYDROCHLORIDE
  6. INSULIN ASPART [Concomitant]
     Active Substance: INSULIN ASPART
     Dosage: 14 U IN THE EVENING 15 MIN BF MEALS
     Route: 058
  7. INSULIN ASPART [Concomitant]
     Active Substance: INSULIN ASPART
     Dosage: 20 U IN THE MORNING 15 MIN BF MEALS
     Route: 058
  8. XIAO KE [Concomitant]
  9. HYDROCHLOROTHIAZIDE. [Concomitant]
     Active Substance: HYDROCHLOROTHIAZIDE
     Dosage: 92.5 MG/DL, UNK
  10. INSULIN ISOPHANE PROTAMINE SUSPENSION [Concomitant]
  11. ACARBOSE. [Concomitant]
     Active Substance: ACARBOSE
     Dosage: 50 MG, TID
     Route: 048

REACTIONS (1)
  - Hypertensive emergency [Recovered/Resolved]

NARRATIVE: CASE EVENT DATE: 20160503
